FAERS Safety Report 8479134-0 (Version None)
Quarter: 2012Q2

REPORT INFORMATION
  Report Type: 
  Country: None (occurrence: None)
  Receive Date: 20120629
  Receipt Date: 20120618
  Transmission Date: 20120825
  Serious: Yes (Other)
  Sender: FDA-Public Use
  Company Number: -CUBIST-2012S1000531

PATIENT
  Age: 73 Year
  Sex: Female
  Weight: 87 kg

DRUGS (3)
  1. CUBICIN [Suspect]
     Indication: BACTERAEMIA
     Route: 042
     Dates: start: 20120409, end: 20120417
  2. AMPICILLIN [Concomitant]
     Indication: PRODUCT USED FOR UNKNOWN INDICATION
  3. CEFTAZIDIME [Concomitant]
     Indication: PRODUCT USED FOR UNKNOWN INDICATION

REACTIONS (5)
  - WHITE BLOOD CELL DISORDER [None]
  - BODY TEMPERATURE FLUCTUATION [None]
  - URINE OUTPUT DECREASED [None]
  - RESPIRATORY RATE INCREASED [None]
  - HYPOTENSION [None]
